FAERS Safety Report 9782532 (Version 1)
Quarter: 2013Q4

REPORT INFORMATION
  Report Type: Spontaneous
  Country: US (occurrence: US)
  Receive Date: 20131226
  Receipt Date: 20131226
  Transmission Date: 20140711
  Serious: No
  Sender: FDA-Public Use
  Company Number: US-BAYER-2013-157065

PATIENT
  Age: 47 Year
  Sex: Male
  Weight: 91 kg

DRUGS (7)
  1. ALEVE CAPLET [Suspect]
     Dosage: 2 DF, BID
     Route: 048
     Dates: start: 201305
  2. ALEVE CAPLET [Suspect]
     Dosage: 1 DF, BID
     Route: 048
     Dates: start: 201309
  3. AZITHROMYCIN [Concomitant]
  4. CEFUROXIME [Concomitant]
  5. TRAMADOL [Concomitant]
  6. CHOLESTYRAMINE [Concomitant]
     Dosage: 1 SCOOP PER DAY
  7. HYDROXYQUINOLINE [Concomitant]

REACTIONS (4)
  - Extra dose administered [None]
  - Incorrect drug administration duration [None]
  - Off label use [None]
  - Drug ineffective [Recovered/Resolved]
